FAERS Safety Report 9966954 (Version 2)
Quarter: 2014Q1

REPORT INFORMATION
  Report Type: Spontaneous
  Country: US (occurrence: US)
  Receive Date: 20140305
  Receipt Date: 20140314
  Transmission Date: 20141002
  Serious: Yes (Death, Hospitalization)
  Sender: FDA-Public Use
  Company Number: US-BAXTER-2014BAX009373

PATIENT
  Age: 28 Year
  Sex: Female

DRUGS (8)
  1. GAMMAGARD LIQUID [Suspect]
     Indication: IMMUNE THROMBOCYTOPENIC PURPURA
     Route: 042
     Dates: start: 2001, end: 2004
  2. GAMMAGARD LIQUID [Suspect]
     Route: 042
  3. RITUXIMAB [Suspect]
     Indication: IMMUNE THROMBOCYTOPENIC PURPURA
  4. DANAZOL [Suspect]
     Indication: EVANS SYNDROME
     Route: 065
  5. DANAZOL [Suspect]
     Indication: IMMUNE THROMBOCYTOPENIC PURPURA
  6. DANAZOL [Suspect]
     Indication: AUTOIMMUNE HAEMOLYTIC ANAEMIA
  7. PNEUMOCOCCAL [Suspect]
     Indication: IMMUNISATION
  8. MENINGOCOCCAL [Suspect]
     Indication: IMMUNISATION
     Route: 065
     Dates: start: 2008, end: 2008

REACTIONS (3)
  - Death [Fatal]
  - Encephalitis viral [Unknown]
  - Coxsackie viral infection [Unknown]
